FAERS Safety Report 10926229 (Version 1)
Quarter: 2015Q1

REPORT INFORMATION
  Report Type: Spontaneous
  Country: US (occurrence: None)
  Receive Date: 20150317
  Receipt Date: 20150317
  Transmission Date: 20150721
  Serious: No
  Sender: FDA-Public Use
  Company Number: None

PATIENT
  Age: 21 Year
  Sex: Female
  Weight: 79.38 kg

DRUGS (4)
  1. FLINTSTONES GUMMY VITAMINS [Concomitant]
  2. TYLENOL [Concomitant]
     Active Substance: ACETAMINOPHEN
  3. IBUPROFEN. [Concomitant]
     Active Substance: IBUPROFEN
  4. MIRENA [Suspect]
     Active Substance: LEVONORGESTREL
     Indication: CONTRACEPTION
     Route: 067
     Dates: start: 20141021, end: 20150316

REACTIONS (5)
  - Dysmenorrhoea [None]
  - Medical device discomfort [None]
  - Menorrhagia [None]
  - Weight increased [None]
  - Mood altered [None]

NARRATIVE: CASE EVENT DATE: 20150110
